FAERS Safety Report 10982913 (Version 1)
Quarter: 2015Q2

REPORT INFORMATION
  Report Type: Spontaneous
  Country: US (occurrence: None)
  Receive Date: 20150401
  Receipt Date: 20150401
  Transmission Date: 20150821
  Serious: Yes (Life-Threatening)
  Sender: FDA-Public Use
  Company Number: FK201501536

PATIENT
  Age: 58 Year
  Sex: Female

DRUGS (3)
  1. DEXMEDETOMIDINE [Suspect]
     Active Substance: DEXMEDETOMIDINE
     Indication: SEDATION
     Route: 042
  2. LIDOCAINE / EPINEPHRINE [Suspect]
     Active Substance: EPINEPHRINE\LIDOCAINE
     Indication: LOCAL ANAESTHESIA
     Dosage: 10 ML, 1:100.000, INTRAVENOUS (NOT OTHERWISE SPECIFIED)
     Route: 042
  3. BUPIVACAINE W/EPINEPHRINE [Suspect]
     Active Substance: BUPIVACAINE\EPINEPHRINE
     Indication: LOCAL ANAESTHESIA
     Dosage: 1:1, INTRAVENOUS (NOT OTHERWISE SEPECIFIED)
     Route: 042

REACTIONS (7)
  - Postictal state [None]
  - Tachycardia [None]
  - Condition aggravated [None]
  - Blood glucose decreased [None]
  - Oropharyngeal pain [None]
  - Hypertension [None]
  - Seizure [None]
